FAERS Safety Report 15244596 (Version 1)
Quarter: 2018Q3

REPORT INFORMATION
  Report Type: Spontaneous
  Country: HK (occurrence: HK)
  Receive Date: 20180806
  Receipt Date: 20180806
  Transmission Date: 20181010
  Serious: Yes (Hospitalization)
  Sender: FDA-Public Use
  Company Number: HK-MYLANLABS-2018M1058998

PATIENT
  Age: 31 Year
  Sex: Male

DRUGS (13)
  1. PHENOBARBITONE                     /00023201/ [Suspect]
     Active Substance: PHENOBARBITAL
     Indication: STATUS EPILEPTICUS
     Route: 065
  2. PHENYTOIN. [Suspect]
     Active Substance: PHENYTOIN
     Indication: STATUS EPILEPTICUS
     Route: 042
  3. LEVETIRACETAM. [Suspect]
     Active Substance: LEVETIRACETAM
     Indication: STATUS EPILEPTICUS
     Route: 065
  4. IMMUNOGLOBULIN                     /00025201/ [Concomitant]
     Active Substance: HUMAN IMMUNOGLOBULIN G
     Indication: PRODUCT USED FOR UNKNOWN INDICATION
     Route: 042
  5. KETAMINE [Suspect]
     Active Substance: KETAMINE
     Indication: STATUS EPILEPTICUS
     Route: 050
  6. ERTAPENEM. [Concomitant]
     Active Substance: ERTAPENEM SODIUM
     Indication: SEPSIS
     Route: 065
  7. MIDAZOLAM [Suspect]
     Active Substance: MIDAZOLAM HYDROCHLORIDE
     Indication: STATUS EPILEPTICUS
     Route: 065
  8. PROPOFOL. [Suspect]
     Active Substance: PROPOFOL
     Indication: STATUS EPILEPTICUS
     Route: 065
  9. VALPROIC ACID. [Suspect]
     Active Substance: VALPROIC ACID
     Indication: STATUS EPILEPTICUS
     Route: 065
  10. SULBACTAM [Concomitant]
     Active Substance: SULBACTAM
     Indication: SEPSIS
     Route: 065
  11. THIOPENTONE                        /00053401/ [Suspect]
     Active Substance: THIOPENTAL
     Indication: STATUS EPILEPTICUS
     Route: 050
  12. TICARCILLIN [Concomitant]
     Active Substance: TICARCILLIN
     Indication: SEPSIS
     Route: 065
  13. MEROPENEM. [Concomitant]
     Active Substance: MEROPENEM
     Indication: SEPSIS
     Route: 065

REACTIONS (2)
  - Hepatotoxicity [Unknown]
  - Hyperammonaemia [Unknown]
